FAERS Safety Report 11783709 (Version 13)
Quarter: 2016Q2

REPORT INFORMATION
  Report Type: Report from Study
  Country: MX (occurrence: MX)
  Receive Date: 20151127
  Receipt Date: 20160621
  Transmission Date: 20160815
  Serious: Yes (Death, Hospitalization, Disabling, Other)
  Sender: FDA-Public Use
  Company Number: PHHO2015MX018808

PATIENT
  Age: 71 Year
  Sex: Female
  Weight: 48.9 kg

DRUGS (5)
  1. COMPARATOR AZACITIDINE [Suspect]
     Active Substance: AZACITIDINE
     Indication: THROMBOCYTOPENIA
  2. ELTROMBOPAG [Suspect]
     Active Substance: ELTROMBOPAG
     Indication: MYELODYSPLASTIC SYNDROME
     Dosage: 1 DF, QD (1 TAB DAILY)
     Route: 048
     Dates: start: 20151030
  3. ELTROMBOPAG [Suspect]
     Active Substance: ELTROMBOPAG
     Indication: THROMBOCYTOPENIA
  4. COMPARATOR AZACITIDINE [Suspect]
     Active Substance: AZACITIDINE
     Indication: MYELODYSPLASTIC SYNDROME
     Dosage: 105 MG, QD (FOR 7 DAYS)
     Route: 058
     Dates: start: 20151030, end: 20151105
  5. INSULINE//INSULIN PORCINE PROTAMINE ZINC [Concomitant]
     Indication: TYPE 2 DIABETES MELLITUS
     Dosage: UNK
     Route: 065
     Dates: start: 2002

REACTIONS (5)
  - Hip fracture [Not Recovered/Not Resolved]
  - Femur fracture [Recovered/Resolved with Sequelae]
  - Febrile neutropenia [Recovered/Resolved]
  - Pneumonia [Fatal]
  - Febrile neutropenia [Recovered/Resolved]

NARRATIVE: CASE EVENT DATE: 20151031
